FAERS Safety Report 17653745 (Version 6)
Quarter: 2020Q2

REPORT INFORMATION
  Report Type: Spontaneous
  Country: US (occurrence: US)
  Receive Date: 20200409
  Receipt Date: 20200630
  Transmission Date: 20200713
  Serious: No
  Sender: FDA-Public Use
  Company Number: US-ACTELION-A-US2020-204171

PATIENT
  Sex: Female
  Weight: 126.98 kg

DRUGS (4)
  1. OPSUMIT [Suspect]
     Active Substance: MACITENTAN
     Indication: PULMONARY ARTERIAL HYPERTENSION
     Dosage: 10 MG, QD
     Route: 048
  2. AMLODIPINE [Concomitant]
     Active Substance: AMLODIPINE BESYLATE
  3. ADCIRCA [Concomitant]
     Active Substance: TADALAFIL
     Dosage: UNK
  4. BOSENTAN. [Concomitant]
     Active Substance: BOSENTAN

REACTIONS (9)
  - Constipation [Unknown]
  - Arthralgia [Not Recovered/Not Resolved]
  - Decreased appetite [Unknown]
  - Dyspepsia [Unknown]
  - Haemorrhoids [Unknown]
  - Abdominal distension [Unknown]
  - Fluid retention [Unknown]
  - Arthritis [Not Recovered/Not Resolved]
  - Anorectal discomfort [Unknown]
